FAERS Safety Report 6070048-2 (Version None)
Quarter: 2009Q1

REPORT INFORMATION
  Report Type: 
  Country: None (occurrence: None)
  Receive Date: 20090209
  Receipt Date: 20090130
  Transmission Date: 20090719
  Serious: Yes (Hospitalization, Other)
  Sender: FDA-Public Use
  Company Number: PHHY2009GB03769

PATIENT
  Age: 15 Year

DRUGS (2)
  1. RITALIN [Suspect]
  2. RISPERIDONE [Concomitant]

REACTIONS (1)
  - SURGERY [None]
